FAERS Safety Report 16099681 (Version 1)
Quarter: 2019Q2

REPORT INFORMATION
  Report Type: Spontaneous
  Country: US (occurrence: US)
  Receive Date: 20190320
  Receipt Date: 20190320
  Transmission Date: 20190711
  Serious: Yes (Hospitalization)
  Sender: FDA-Public Use
  Company Number: None

PATIENT
  Age: 79 Year
  Sex: Male

DRUGS (9)
  1. ASPIRIN. [Concomitant]
     Active Substance: ASPIRIN
  2. LOPERAMIDE [Concomitant]
     Active Substance: LOPERAMIDE
  3. CARVEDILOL. [Concomitant]
     Active Substance: CARVEDILOL
  4. PRAVASTATIN. [Concomitant]
     Active Substance: PRAVASTATIN
  5. TAMSULOSIN [Concomitant]
     Active Substance: TAMSULOSIN
  6. CAPECITABINE. [Suspect]
     Active Substance: CAPECITABINE
     Indication: RECTAL CANCER
     Dosage: ?          OTHER FREQUENCY:T2 PO 2X DAILY;?
     Route: 048
     Dates: start: 20171121
  7. PANTOPRAZOLE [Concomitant]
     Active Substance: PANTOPRAZOLE
  8. DIPEHN/ATROP [Concomitant]
  9. DUTASTERIDE. [Concomitant]
     Active Substance: DUTASTERIDE

REACTIONS (5)
  - Therapy cessation [None]
  - Device dislocation [None]
  - Stent placement [None]
  - Proctalgia [None]
  - Clostridium difficile infection [None]

NARRATIVE: CASE EVENT DATE: 20190319
